FAERS Safety Report 12770270 (Version 1)
Quarter: 2016Q3

REPORT INFORMATION
  Report Type: Spontaneous
  Country: DK (occurrence: DK)
  Receive Date: 20160922
  Receipt Date: 20160922
  Transmission Date: 20161109
  Serious: Yes (Hospitalization)
  Sender: FDA-Public Use
  Company Number: DK-TEVA-692510ACC

PATIENT
  Age: 71 Year
  Sex: Male

DRUGS (14)
  1. METFORMIN ^AUROBINDO^ [Concomitant]
     Indication: DIABETES MELLITUS
  2. GLIMEPIRID ^ACTAVIS^ [Concomitant]
     Indication: DIABETES MELLITUS
  3. FUROSEMID ^ORIFARM^ [Concomitant]
     Indication: DIURETIC THERAPY
  4. ALDACTONE [Concomitant]
     Active Substance: SPIRONOLACTONE
     Indication: DIURETIC THERAPY
  5. LYRICA [Concomitant]
     Active Substance: PREGABALIN
     Indication: PAIN
  6. HJERTEMAGNYL [Concomitant]
     Active Substance: ASPIRIN\MAGNESIUM OXIDE
     Indication: ANTICOAGULANT THERAPY
  7. INSULATARD FLEXPEN [Concomitant]
     Active Substance: INSULIN HUMAN
     Indication: DIABETES MELLITUS
  8. ISOSORBIDMONONITRAT ^PARANOVA^ [Concomitant]
     Indication: ANGINA PECTORIS
  9. LOSARTAN ^TEVA^ [Suspect]
     Active Substance: LOSARTAN
     Indication: HYPERTENSION
     Dosage: 100 MILLIGRAM DAILY; STRENGTH: 100 MG
     Route: 048
     Dates: start: 20160119, end: 20160826
  10. IPREN [Interacting]
     Active Substance: IBUPROFEN
     Indication: PAIN
     Dosage: 600 MILLIGRAM DAILY; STRENGTH: 200 MG
     Route: 048
     Dates: start: 201608, end: 20160826
  11. BISOPROLOL ^VITABALANS^ [Concomitant]
     Indication: CARDIAC DISORDER
  12. NITROLINGUAL [Concomitant]
     Active Substance: NITROGLYCERIN
     Indication: ANGINA PECTORIS
  13. ZARATOR [Concomitant]
     Active Substance: ATORVASTATIN CALCIUM
     Indication: HYPERCHOLESTEROLAEMIA
  14. TRADOLAN [Concomitant]
     Active Substance: TRAMADOL
     Indication: PAIN

REACTIONS (3)
  - Hyperkalaemia [Recovering/Resolving]
  - Drug interaction [Unknown]
  - Acute kidney injury [Recovering/Resolving]

NARRATIVE: CASE EVENT DATE: 201608
